FAERS Safety Report 18715703 (Version 2)
Quarter: 2021Q1

REPORT INFORMATION
  Report Type: Spontaneous
  Country: FR (occurrence: FR)
  Receive Date: 20210108
  Receipt Date: 20210204
  Transmission Date: 20210419
  Serious: Yes (Death)
  Sender: FDA-Public Use
  Company Number: FR-ABBVIE-21K-056-3721176-00

PATIENT
  Age: 81 Year
  Sex: Male

DRUGS (1)
  1. VENCLYXTO [Suspect]
     Active Substance: VENETOCLAX
     Indication: PRODUCT USED FOR UNKNOWN INDICATION
     Dosage: S
     Route: 048
     Dates: start: 20201230, end: 20201230

REACTIONS (1)
  - Death [Fatal]
